FAERS Safety Report 5635919-7 (Version None)
Quarter: 2008Q1

REPORT INFORMATION
  Report Type: 
  Country: None (occurrence: None)
  Receive Date: 20080219
  Receipt Date: 20080214
  Transmission Date: 20080703
  Serious: Yes (Hospitalization)
  Sender: FDA-Public Use
  Company Number: SP01726

PATIENT
  Age: 33 Year
  Sex: Male

DRUGS (3)
  1. VISICOL [Suspect]
     Indication: ENDOSCOPY LARGE BOWEL
     Dosage: 50G (50TAB), ORAL
     Route: 048
     Dates: start: 20071127, end: 20071127
  2. SODIUM PICOSULFATE [Suspect]
     Indication: BOWEL PREPARATION
     Dosage: (10 ML), ORAL
     Route: 048
     Dates: start: 20071126, end: 20071126
  3. SODIUM PICOSULFATE [Suspect]
     Indication: COLONOSCOPY
     Dosage: (10 ML), ORAL
     Route: 048
     Dates: start: 20071126, end: 20071126

REACTIONS (3)
  - ABDOMINAL PAIN [None]
  - ILEUS [None]
  - PYREXIA [None]
